FAERS Safety Report 19079044 (Version 4)
Quarter: 2021Q4

REPORT INFORMATION
  Report Type: Report from Study
  Country: US (occurrence: US)
  Receive Date: 20210331
  Receipt Date: 20211005
  Transmission Date: 20220303
  Serious: Yes (Hospitalization, Other)
  Sender: FDA-Public Use
  Company Number: US-OTSUKA-2021_010324

PATIENT
  Age: 77 Year
  Sex: Female

DRUGS (2)
  1. CEDAZURIDINE\DECITABINE [Suspect]
     Active Substance: CEDAZURIDINE\DECITABINE
     Indication: Myelodysplastic syndrome
     Dosage: 135 MG, (35 MG DECITABINE AND 100 MG CEDAZURIDINE) QD FOR 5 DAYS 1-5 IN A 28 DAY CYCLE)
     Route: 048
     Dates: start: 20210310
  2. CEDAZURIDINE\DECITABINE [Suspect]
     Active Substance: CEDAZURIDINE\DECITABINE
     Dosage: 135 MG, (35 MG DECITABINE AND 100 MG CEDAZURIDINE) QD FOR 5 DAYS 1-5 IN A 28 DAY CYCLE)
     Route: 048

REACTIONS (11)
  - Blood magnesium decreased [Unknown]
  - Localised infection [Unknown]
  - Transfusion [Unknown]
  - Yellow skin [Recovering/Resolving]
  - Depression [Recovering/Resolving]
  - Constipation [Unknown]
  - Hypotension [Unknown]
  - Urinary tract infection [Unknown]
  - Fatigue [Recovering/Resolving]
  - White blood cell count decreased [Unknown]
  - Platelet count decreased [Unknown]

NARRATIVE: CASE EVENT DATE: 20210313
